FAERS Safety Report 4868950-X (Version None)
Quarter: 2005Q4

REPORT INFORMATION
  Report Type: 
  Country: None (occurrence: None)
  Receive Date: 20051229
  Receipt Date: 20051212
  Transmission Date: 20060501
  Serious: Yes (Other)
  Sender: FDA-Public Use
  Company Number: IT-MERCK-0512ITA00005

PATIENT
  Age: 55 Year
  Sex: Male

DRUGS (2)
  1. PROSCAR [Suspect]
     Indication: BENIGN PROSTATIC HYPERPLASIA
     Route: 048
  2. TERAZOSIN HYDROCHLORIDE [Concomitant]
     Route: 048

REACTIONS (3)
  - ANAPHYLACTIC SHOCK [None]
  - FALL [None]
  - LOSS OF CONSCIOUSNESS [None]
